FAERS Safety Report 15997714 (Version 2)
Quarter: 2019Q1

REPORT INFORMATION
  Report Type: Spontaneous
  Country: JP (occurrence: JP)
  Receive Date: 20190222
  Receipt Date: 20190329
  Transmission Date: 20190418
  Serious: Yes (Hospitalization)
  Sender: FDA-Public Use
  Company Number: JP-ELI_LILLY_AND_COMPANY-JP201902010470

PATIENT
  Age: 67 Year
  Sex: Male

DRUGS (13)
  1. DAIPHEN [Concomitant]
     Active Substance: SULFAMETHOXAZOLE\TRIMETHOPRIM
  2. CALFINA [Concomitant]
     Active Substance: ALFACALCIDOL
  3. IRSOGLADINE MALEATE [Concomitant]
     Active Substance: IRSOGLADINE MALEATE
  4. CARBOCISTEINE [Concomitant]
     Active Substance: CARBOCYSTEINE
  5. OLUMIANT [Suspect]
     Active Substance: BARICITINIB
     Indication: RHEUMATOID ARTHRITIS
     Dosage: 2 MG, DAILY
     Route: 048
     Dates: start: 20180126, end: 20180528
  6. PREDNISOLONE. [Concomitant]
     Active Substance: PREDNISOLONE
  7. CLARITH [Concomitant]
     Active Substance: CLARITHROMYCIN
  8. BENET [Concomitant]
     Active Substance: RISEDRONATE SODIUM
  9. LANSOPRAZOLE. [Concomitant]
     Active Substance: LANSOPRAZOLE
  10. OLUMIANT [Suspect]
     Active Substance: BARICITINIB
     Dosage: 4 MG, DAILY
     Route: 048
     Dates: start: 20180529, end: 20181128
  11. ETODOLAC. [Concomitant]
     Active Substance: ETODOLAC
  12. LORATADINE. [Concomitant]
     Active Substance: LORATADINE
  13. SEEBRI [Concomitant]
     Active Substance: GLYCOPYRROLATE

REACTIONS (1)
  - Adenocarcinoma gastric [Recovered/Resolved]

NARRATIVE: CASE EVENT DATE: 20180823
